FAERS Safety Report 16964702 (Version 1)
Quarter: 2019Q4

REPORT INFORMATION
  Report Type: Report from Study
  Country: CA (occurrence: CA)
  Receive Date: 20191028
  Receipt Date: 20191028
  Transmission Date: 20200122
  Serious: Yes (Other)
  Sender: FDA-Public Use
  Company Number: CA-ORION CORPORATION ORION PHARMA-TREX2019-4713

PATIENT
  Age: 45 Year
  Sex: Female

DRUGS (17)
  1. METHOTREXATE (TRADE NAME UNKNOWN) [Suspect]
     Active Substance: METHOTREXATE
     Indication: PRODUCT USED FOR UNKNOWN INDICATION
     Route: 048
  2. LEFLUNOMIDE. [Suspect]
     Active Substance: LEFLUNOMIDE
     Indication: PRODUCT USED FOR UNKNOWN INDICATION
     Route: 065
  3. PREDNISONE. [Concomitant]
     Active Substance: PREDNISONE
     Route: 065
  4. STELARA [Concomitant]
     Active Substance: USTEKINUMAB
     Route: 065
  5. COSENTYX [Suspect]
     Active Substance: SECUKINUMAB
     Indication: PSORIASIS
     Route: 058
  6. REMICADE [Concomitant]
     Active Substance: INFLIXIMAB
     Route: 065
  7. CICLOSPORIN [Suspect]
     Active Substance: CYCLOSPORINE
     Indication: PRODUCT USED FOR UNKNOWN INDICATION
     Route: 048
  8. SIMPONI [Concomitant]
     Active Substance: GOLIMUMAB
     Route: 065
  9. COSENTYX [Suspect]
     Active Substance: SECUKINUMAB
     Route: 058
  10. COSENTYX [Suspect]
     Active Substance: SECUKINUMAB
     Route: 058
  11. RITUXAN [Concomitant]
     Active Substance: RITUXIMAB
     Route: 065
  12. COSENTYX [Suspect]
     Active Substance: SECUKINUMAB
     Indication: PSORIATIC ARTHROPATHY
     Route: 058
  13. PLAQUENIL [Concomitant]
     Active Substance: HYDROXYCHLOROQUINE SULFATE
     Route: 065
  14. METHOTREXATE (TRADE NAME UNKNOWN) [Suspect]
     Active Substance: METHOTREXATE
     Route: 058
  15. CIMZIA [Concomitant]
     Active Substance: CERTOLIZUMAB PEGOL
     Route: 065
  16. NAPROXEN. [Concomitant]
     Active Substance: NAPROXEN
     Route: 065
  17. SULFASALAZINE. [Concomitant]
     Active Substance: SULFASALAZINE
     Route: 065

REACTIONS (15)
  - Erythema [Not Recovered/Not Resolved]
  - Eye swelling [Not Recovered/Not Resolved]
  - Pain in extremity [Not Recovered/Not Resolved]
  - Inappropriate schedule of product administration [Not Recovered/Not Resolved]
  - Drug ineffective [Not Recovered/Not Resolved]
  - Angioedema [Not Recovered/Not Resolved]
  - Influenza [Not Recovered/Not Resolved]
  - Cellulitis [Not Recovered/Not Resolved]
  - Respiratory tract inflammation [Not Recovered/Not Resolved]
  - Fatigue [Not Recovered/Not Resolved]
  - Arthralgia [Not Recovered/Not Resolved]
  - Peripheral swelling [Not Recovered/Not Resolved]
  - Cough [Not Recovered/Not Resolved]
  - Joint swelling [Not Recovered/Not Resolved]
  - Tenderness [Not Recovered/Not Resolved]
